FAERS Safety Report 5116728-4 (Version None)
Quarter: 2006Q3

REPORT INFORMATION
  Report Type: 
  Country: None (occurrence: None)
  Receive Date: 20060928
  Receipt Date: 20060918
  Transmission Date: 20061208
  Serious: Yes (Other)
  Sender: FDA-Public Use
  Company Number: PHBS2006PT14289

PATIENT
  Age: 66 Year
  Sex: Male

DRUGS (3)
  1. ZOLEDRONIC ACID [Suspect]
     Indication: MULTIPLE MYELOMA
     Route: 065
  2. MELPHALAN [Concomitant]
     Route: 065
  3. PREDNISONE [Concomitant]
     Route: 065

REACTIONS (13)
  - BONE DISORDER [None]
  - DENTAL DISCOMFORT [None]
  - EXCESSIVE GRANULATION TISSUE [None]
  - FISTULA [None]
  - HYPOAESTHESIA ORAL [None]
  - IMPAIRED HEALING [None]
  - OSTEOMYELITIS [None]
  - OSTEONECROSIS [None]
  - PAIN IN JAW [None]
  - PRIMARY SEQUESTRUM [None]
  - PURULENT DISCHARGE [None]
  - TOOTH EXTRACTION [None]
  - WOUND DEBRIDEMENT [None]
